FAERS Safety Report 9443228 (Version 1)
Quarter: 2013Q3

REPORT INFORMATION
  Report Type: Spontaneous
  Country: FR (occurrence: FR)
  Receive Date: 20130806
  Receipt Date: 20130806
  Transmission Date: 20140515
  Serious: Yes (Hospitalization)
  Sender: FDA-Public Use
  Company Number: FR-SANOFI-AVENTIS-2013SA076587

PATIENT
  Age: 89 Year
  Sex: Female

DRUGS (6)
  1. STILNOX [Suspect]
     Indication: INTENTIONAL OVERDOSE
     Route: 048
     Dates: start: 20130710, end: 20130710
  2. TANAKAN [Concomitant]
  3. EFFEXOR [Concomitant]
  4. CHONDROSULF [Concomitant]
  5. ACTONEL [Concomitant]
  6. GLUCOSAMINE [Concomitant]

REACTIONS (5)
  - Pneumonia aspiration [Recovered/Resolved]
  - Intentional overdose [Unknown]
  - Somnolence [Recovered/Resolved]
  - Confusional state [Recovered/Resolved]
  - Vomiting [Recovered/Resolved]
